FAERS Safety Report 7755021-8 (Version None)
Quarter: 2011Q3

REPORT INFORMATION
  Report Type: 
  Country: None (occurrence: None)
  Receive Date: 20110916
  Receipt Date: 20110914
  Transmission Date: 20111222
  Serious: Yes (Hospitalization)
  Sender: FDA-Public Use
  Company Number: US-BRISTOL-MYERS SQUIBB COMPANY-16059115

PATIENT
  Sex: Female

DRUGS (5)
  1. CARBOPLATIN [Suspect]
     Indication: HEAD AND NECK CANCER
  2. ERBITUX [Suspect]
     Indication: HEAD AND NECK CANCER
  3. FLUOROURACIL [Suspect]
     Indication: HEAD AND NECK CANCER
  4. TAXOTERE [Suspect]
     Indication: HEAD AND NECK CANCER
  5. CISPLATIN [Suspect]
     Indication: HEAD AND NECK CANCER

REACTIONS (1)
  - ATRIAL FIBRILLATION [None]
